FAERS Safety Report 10277417 (Version 2)
Quarter: 2014Q3

REPORT INFORMATION
  Report Type: Spontaneous
  Country: GB (occurrence: GB)
  Receive Date: 20140703
  Receipt Date: 20140808
  Transmission Date: 20150326
  Serious: Yes (Disabling, Other)
  Sender: FDA-Public Use
  Company Number: GB-TEVA-491609ISR

PATIENT
  Age: 75 Year
  Sex: Male
  Weight: 88.9 kg

DRUGS (7)
  1. DIAZEPAM. [Suspect]
     Active Substance: DIAZEPAM
     Indication: MUSCLE RELAXANT THERAPY
     Route: 048
     Dates: start: 20140104, end: 20140105
  2. GABAPENTIN. [Suspect]
     Active Substance: GABAPENTIN
     Indication: FALL
     Dosage: 100 MG POSSIBLY
     Route: 048
     Dates: start: 20140106, end: 20140109
  3. OMEPRAZOLE. [Suspect]
     Active Substance: OMEPRAZOLE
     Indication: PROPHYLAXIS
     Route: 048
     Dates: start: 20140102
  4. TRAMADOL [Suspect]
     Active Substance: TRAMADOL
     Indication: FALL
     Route: 048
     Dates: start: 20131229, end: 20140106
  5. NAPROXEN. [Suspect]
     Active Substance: NAPROXEN
     Indication: ARTHRALGIA
     Route: 048
     Dates: start: 20140102, end: 20140306
  6. AMITRIPTYLINE [Suspect]
     Active Substance: AMITRIPTYLINE
     Indication: SLEEP DISORDER
     Route: 048
     Dates: start: 20140115, end: 20140417
  7. CODEINE [Suspect]
     Active Substance: CODEINE
     Indication: PAIN
     Dosage: 15 MG POSSIBLY
     Route: 048
     Dates: start: 20140110, end: 20140215

REACTIONS (22)
  - Abulia [Recovered/Resolved with Sequelae]
  - Amnesia [Recovered/Resolved]
  - Abdominal pain upper [Recovered/Resolved]
  - Delirium [Recovered/Resolved with Sequelae]
  - Hallucination [Recovered/Resolved with Sequelae]
  - Memory impairment [Recovered/Resolved]
  - Anxiety [Recovered/Resolved with Sequelae]
  - Irritability [Recovered/Resolved with Sequelae]
  - Speech disorder [Recovered/Resolved with Sequelae]
  - Disturbance in attention [Recovered/Resolved]
  - Depression [Recovered/Resolved]
  - Delusion [Recovered/Resolved with Sequelae]
  - Bladder disorder [Recovered/Resolved]
  - Confusional state [Recovered/Resolved with Sequelae]
  - Coordination abnormal [Recovered/Resolved]
  - Nightmare [Recovered/Resolved with Sequelae]
  - Insomnia [Recovered/Resolved with Sequelae]
  - Motor dysfunction [Recovered/Resolved]
  - Apraxia [Recovered/Resolved]
  - Dry mouth [Recovered/Resolved]
  - Muscle disorder [Recovered/Resolved]
  - Gait disturbance [Recovered/Resolved]

NARRATIVE: CASE EVENT DATE: 20131229
